FAERS Safety Report 9271533 (Version 1)
Quarter: 2013Q2

REPORT INFORMATION
  Report Type: Report from Study
  Country: US (occurrence: US)
  Receive Date: 20130506
  Receipt Date: 20130506
  Transmission Date: 20140414
  Serious: Yes (Hospitalization)
  Sender: FDA-Public Use
  Company Number: US-JNJFOC-20130414039

PATIENT
  Age: 53 Year
  Sex: Female
  Weight: 73.94 kg

DRUGS (16)
  1. REMICADE [Suspect]
     Indication: RHEUMATOID ARTHRITIS
     Dosage: DOSE: 300 (UNITS UNSPECIFIED)
     Route: 042
     Dates: start: 201206
  2. REMICADE [Suspect]
     Indication: RHEUMATOID ARTHRITIS
     Route: 042
     Dates: start: 20130214
  3. TRAMADOL [Concomitant]
     Indication: ARTHRALGIA
     Dosage: 1-2 AS NEEDED DAILY AT BEDTIME
     Route: 048
     Dates: start: 200901
  4. LIPITOR [Concomitant]
     Indication: BLOOD CHOLESTEROL INCREASED
     Route: 048
     Dates: start: 201001
  5. METHOTREXATE [Concomitant]
     Indication: RHEUMATOID ARTHRITIS
     Route: 048
     Dates: start: 2011
  6. HYDROXYCHLOROQUINE [Concomitant]
     Indication: RHEUMATOID ARTHRITIS
     Route: 048
     Dates: start: 2011
  7. FOLIC ACID [Concomitant]
     Indication: PROPHYLAXIS
     Route: 048
     Dates: start: 2011
  8. POTASSIUM CHLORIDE [Concomitant]
     Indication: BLOOD POTASSIUM DECREASED
     Route: 048
     Dates: start: 200901
  9. FAMOTIDINE [Concomitant]
     Indication: GASTROINTESTINAL DISORDER THERAPY
     Route: 048
     Dates: start: 201303
  10. PANTOPRAZOLE [Concomitant]
     Indication: GASTROINTESTINAL DISORDER THERAPY
     Route: 048
     Dates: start: 200901, end: 201303
  11. ZOLPIDEM [Concomitant]
     Indication: ARTHRALGIA
     Route: 048
     Dates: start: 200901
  12. VITAMIN D3 [Concomitant]
     Indication: VITAMIN D DECREASED
     Route: 048
     Dates: start: 200901
  13. VITAMIN B12 [Concomitant]
     Route: 048
     Dates: start: 200901
  14. VITAMIN E (TOCOPHERYL ACETATE) [Concomitant]
     Route: 048
     Dates: start: 200901
  15. FOSAMAX [Concomitant]
     Indication: PROPHYLAXIS
     Route: 048
     Dates: start: 20130422
  16. CALCIUM [Concomitant]
     Indication: PROPHYLAXIS
     Route: 048
     Dates: start: 20130422

REACTIONS (1)
  - Crohn^s disease [Not Recovered/Not Resolved]
